FAERS Safety Report 6888312-3 (Version None)
Quarter: 2010Q3

REPORT INFORMATION
  Report Type: 
  Country: None (occurrence: None)
  Receive Date: 20100730
  Receipt Date: 20100726
  Transmission Date: 20110219
  Serious: Yes (Hospitalization)
  Sender: FDA-Public Use
  Company Number: FR-BRISTOL-MYERS SQUIBB COMPANY-15213036

PATIENT
  Age: 89 Year
  Sex: Female

DRUGS (12)
  1. IRBESARTAN AND HYDROCHLOROTHIAZIDE [Suspect]
     Dosage: 1 DF:1 TABS
     Route: 048
  2. HYPERIUM [Suspect]
     Dosage: FORMULATION:1MG,DOSAGE:1TAB/DAY
     Route: 048
     Dates: end: 20100623
  3. NITROGLYCERIN [Suspect]
     Dosage: FORMULATION:0.15MG,DOSAGE:1 DOSE/DAY
     Route: 060
  4. LEVOTHYROXINE SODIUM [Concomitant]
     Route: 048
  5. TAHOR [Concomitant]
     Route: 048
  6. VASTAREL [Concomitant]
     Dosage: 1 DF:1 TABS/DAY
     Route: 048
  7. EFFERALGAN [Concomitant]
  8. FOSAVANCE [Concomitant]
     Dosage: 1 DF:0.1429TABS/DAY
     Route: 048
  9. GINKGO BILOBA [Concomitant]
     Dosage: 1 DF:3DOSAGEFORMS
     Route: 048
  10. PIASCLEDINE [Concomitant]
     Route: 048
  11. FLECTOR [Concomitant]
     Dosage: DOSAGE:3 SACHETS
     Route: 048
  12. PANTOPRAZOLE [Concomitant]
     Route: 048

REACTIONS (2)
  - MALAISE [None]
  - SYNCOPE [None]
